FAERS Safety Report 7919801-8 (Version None)
Quarter: 2011Q4

REPORT INFORMATION
  Report Type: 
  Country: None (occurrence: None)
  Receive Date: 20111117
  Receipt Date: 20111110
  Transmission Date: 20120403
  Serious: Yes (Other)
  Sender: FDA-Public Use
  Company Number: CA-JNJFOC-20110202905

PATIENT
  Age: 54 Year
  Sex: Male

DRUGS (6)
  1. DARUNAVIR ETHANOLATE [Suspect]
     Indication: HIV INFECTION
     Route: 048
  2. ETRAVIRINE [Suspect]
     Indication: HIV INFECTION
     Route: 048
  3. EMTRICITABINE/TENOFOVIR DISOPROXIL FUMARATE [Concomitant]
     Indication: HIV INFECTION
     Route: 048
  4. CASPOFUNGIN ACETATE [Concomitant]
     Indication: ASPERGILLOSIS
     Route: 042
  5. VORICONAZOLE [Interacting]
     Indication: ASPERGILLOSIS
     Route: 042
  6. RITONAVIR [Interacting]
     Indication: HIV INFECTION
     Route: 048

REACTIONS (1)
  - DRUG INTERACTION [None]
